FAERS Safety Report 10214715 (Version 1)
Quarter: 2014Q2

REPORT INFORMATION
  Report Type: Spontaneous
  Country: US (occurrence: US)
  Receive Date: 20140603
  Receipt Date: 20140603
  Transmission Date: 20141212
  Serious: Yes (Death, Other)
  Sender: FDA-Public Use
  Company Number: US-PURDUE-USA-2014-0114384

PATIENT
  Sex: Female

DRUGS (2)
  1. OXYCONTIN (NDA 22-272) [Suspect]
     Indication: PAIN
     Dosage: 20 MG, Q12H
     Route: 048
  2. COCAINE [Suspect]
     Indication: SUBSTANCE ABUSE
     Route: 065

REACTIONS (3)
  - Death [Fatal]
  - Drug abuse [Unknown]
  - Surgery [Unknown]
